FAERS Safety Report 25439785 (Version 5)
Quarter: 2025Q4

REPORT INFORMATION
  Report Type: Report from Study
  Country: US (occurrence: US)
  Receive Date: 20250616
  Receipt Date: 20251002
  Transmission Date: 20260117
  Serious: Yes (Other)
  Sender: ABBVIE
  Company Number: US-ABBVIE-6320410

PATIENT
  Age: 64 Year
  Sex: Male
  Weight: 134 kg

DRUGS (3)
  1. RINVOQ [Suspect]
     Active Substance: UPADACITINIB
     Indication: Rheumatoid arthritis
     Route: 048
     Dates: start: 20220101
  2. RINVOQ [Suspect]
     Active Substance: UPADACITINIB
     Indication: Rheumatoid arthritis
     Route: 048
     Dates: start: 2021
  3. RINVOQ [Suspect]
     Active Substance: UPADACITINIB
     Indication: Rheumatoid arthritis
     Route: 048
     Dates: start: 20231221, end: 202504

REACTIONS (10)
  - Intervertebral disc protrusion [Recovering/Resolving]
  - Pain [Recovering/Resolving]
  - Spinal fusion surgery [Recovering/Resolving]
  - Fracture [Recovering/Resolving]
  - Device related infection [Recovering/Resolving]
  - Fall [Recovered/Resolved]
  - Post procedural sepsis [Unknown]
  - Fall [Unknown]
  - Rotator cuff syndrome [Unknown]
  - Nephrolithiasis [Not Recovered/Not Resolved]

NARRATIVE: CASE EVENT DATE: 20250101
